FAERS Safety Report 22397533 (Version 1)
Quarter: 2023Q2

REPORT INFORMATION
  Report Type: Report from Study
  Country: CA (occurrence: CA)
  Receive Date: 20230602
  Receipt Date: 20230602
  Transmission Date: 20230722
  Serious: Yes (Hospitalization, Other)
  Sender: FDA-Public Use
  Company Number: CA-ABBVIE-5180469

PATIENT
  Age: 62 Year
  Sex: Female

DRUGS (1)
  1. RINVOQ [Suspect]
     Active Substance: UPADACITINIB
     Indication: Dermatitis atopic
     Dosage: FORM STRENGTH: 15 MG??ADDITIONAL COMMENTS: NOT ACCESSIBLE TO PATIENT
     Route: 048
     Dates: end: 202305

REACTIONS (6)
  - Pyrexia [Unknown]
  - Crohn^s disease [Unknown]
  - Psoriasis [Unknown]
  - Intestinal ischaemia [Unknown]
  - Psoriatic arthropathy [Unknown]
  - Abdominal pain [Unknown]

NARRATIVE: CASE EVENT DATE: 20230501
